FAERS Safety Report 15315352 (Version 1)
Quarter: 2018Q3

REPORT INFORMATION
  Report Type: Spontaneous
  Country: US (occurrence: US)
  Receive Date: 20180824
  Receipt Date: 20180824
  Transmission Date: 20181010
  Serious: Yes (Other)
  Sender: FDA-Public Use
  Company Number: US-DSJP-DSU-2017-146437

PATIENT

DRUGS (5)
  1. BENICAR HCT [Suspect]
     Active Substance: HYDROCHLOROTHIAZIDE\OLMESARTAN MEDOXOMIL
     Dosage: 20?12.5MG 0.5 TABLET , QD
     Route: 048
  2. BENICAR HCT [Suspect]
     Active Substance: HYDROCHLOROTHIAZIDE\OLMESARTAN MEDOXOMIL
     Dosage: 20?12.5MG, QD
     Route: 048
     Dates: start: 20080603, end: 20160510
  3. BENICAR [Suspect]
     Active Substance: OLMESARTAN MEDOXOMIL
     Indication: PRODUCT USED FOR UNKNOWN INDICATION
     Dosage: UNK
     Dates: start: 2009, end: 20110323
  4. BENICAR HCT [Suspect]
     Active Substance: HYDROCHLOROTHIAZIDE\OLMESARTAN MEDOXOMIL
     Indication: HYPERTENSIVE HEART DISEASE
     Dosage: 40?25MG, QD
     Route: 048
     Dates: start: 20080603
  5. BENICAR HCT [Suspect]
     Active Substance: HYDROCHLOROTHIAZIDE\OLMESARTAN MEDOXOMIL
     Dosage: 40?25MG 0.25 TABLET, QD
     Route: 048
     Dates: start: 20160510

REACTIONS (4)
  - Syncope [Unknown]
  - Gastrooesophageal reflux disease [Unknown]
  - Diarrhoea [Recovered/Resolved]
  - Drug administration error [Not Recovered/Not Resolved]

NARRATIVE: CASE EVENT DATE: 20140929
